FAERS Safety Report 8335201-3 (Version None)
Quarter: 2012Q2

REPORT INFORMATION
  Report Type: 
  Country: None (occurrence: None)
  Receive Date: 20120503
  Receipt Date: 20120427
  Transmission Date: 20120825
  Serious: Yes (Other)
  Sender: FDA-Public Use
  Company Number: US-JNJFOC-20120413926

PATIENT
  Sex: Male
  Weight: 97.52 kg

DRUGS (11)
  1. LIPITOR [Concomitant]
     Indication: BLOOD CHOLESTEROL INCREASED
     Route: 048
     Dates: start: 19970101
  2. ASPIRIN [Concomitant]
     Indication: MYOCARDIAL INFARCTION
     Route: 048
     Dates: start: 20040101
  3. ZETIA [Concomitant]
     Indication: BLOOD CHOLESTEROL INCREASED
     Route: 048
     Dates: start: 20050101
  4. MOBIC [Concomitant]
     Indication: ARTHRITIS
     Route: 048
     Dates: start: 20101001
  5. PROTONIX [Concomitant]
     Indication: BARRETT'S OESOPHAGUS
     Route: 048
     Dates: start: 20100101
  6. SIMPONI [Suspect]
     Indication: PSORIATIC ARTHROPATHY
     Route: 058
     Dates: start: 20120415
  7. LYRICA [Concomitant]
     Indication: TRIGEMINAL NEURALGIA
     Route: 048
     Dates: start: 20070101
  8. LISINOPRIL [Suspect]
     Indication: HYPERTENSION
     Route: 048
     Dates: start: 20110701
  9. TOPROL-XL [Concomitant]
     Route: 048
     Dates: start: 20040101
  10. SIMPONI [Suspect]
     Route: 058
     Dates: start: 20110101, end: 20120115
  11. LISINOPRIL [Suspect]
     Route: 048
     Dates: start: 20070101, end: 20110701

REACTIONS (1)
  - MALIGNANT MELANOMA [None]
